FAERS Safety Report 7349404-8 (Version None)
Quarter: 2011Q1

REPORT INFORMATION
  Report Type: 
  Country: None (occurrence: None)
  Receive Date: 20110303
  Receipt Date: 20110218
  Transmission Date: 20110831
  Serious: Yes (Other)
  Sender: FDA-Public Use
  Company Number: DSA_45073_2011

PATIENT
  Sex: Female

DRUGS (1)
  1. ENALAPRIL [Suspect]
     Indication: HYPERTENSION
     Dosage: (10 MG BID ORAL) ; (5 MG BID ORAL)
     Route: 048
     Dates: start: 20040101

REACTIONS (14)
  - BACK PAIN [None]
  - ACTIVITIES OF DAILY LIVING IMPAIRED [None]
  - FEELING ABNORMAL [None]
  - ASTHENIA [None]
  - URINARY INCONTINENCE [None]
  - MUSCLE SPASMS [None]
  - SYNCOPE [None]
  - DECREASED APPETITE [None]
  - WEIGHT DECREASED [None]
  - BLOOD PRESSURE DECREASED [None]
  - MYALGIA [None]
  - CONVULSION [None]
  - DEAFNESS UNILATERAL [None]
  - HYPOAESTHESIA [None]
